FAERS Safety Report 9513629 (Version 1)
Quarter: 2013Q3

REPORT INFORMATION
  Report Type: Spontaneous
  Country: RU (occurrence: RU)
  Receive Date: 20130910
  Receipt Date: 20130910
  Transmission Date: 20140515
  Serious: Yes (Other)
  Sender: FDA-Public Use
  Company Number: RU-VIIV HEALTHCARE LIMITED-B0915919A

PATIENT
  Age: 11 Year
  Sex: Male

DRUGS (4)
  1. ABACAVIR [Suspect]
     Indication: HIV INFECTION
     Dates: start: 20100824
  2. PREZISTA [Suspect]
     Indication: HIV INFECTION
     Dates: start: 20120824
  3. RITONAVIR [Suspect]
     Indication: HIV INFECTION
     Dates: start: 20101016
  4. INTELENCE [Concomitant]
     Indication: HIV INFECTION
     Dates: start: 20111005

REACTIONS (12)
  - Chronic tonsillitis [Unknown]
  - Drug ineffective [Not Recovered/Not Resolved]
  - Pharyngitis [Unknown]
  - Growth retardation [Unknown]
  - Splenomegaly [Unknown]
  - Nephrolithiasis [Unknown]
  - Sinus arrhythmia [Unknown]
  - Haematuria [Unknown]
  - Enuresis [Unknown]
  - Therapeutic response unexpected [Unknown]
  - Proteinuria [Unknown]
  - Urinary tract infection [Unknown]
